FAERS Safety Report 11297014 (Version 1)
Quarter: 2015Q3

REPORT INFORMATION
  Report Type: Spontaneous
  Country: US (occurrence: US)
  Receive Date: 20150722
  Receipt Date: 20150722
  Transmission Date: 20151125
  Serious: No
  Sender: FDA-Public Use
  Company Number: US-ELI_LILLY_AND_COMPANY-US201101001128

PATIENT
  Sex: Female

DRUGS (1)
  1. EVISTA [Suspect]
     Active Substance: RALOXIFENE HYDROCHLORIDE
     Indication: HORMONE SUPPRESSION THERAPY
     Dosage: 60 MG, DAILY (1/D)
     Dates: start: 20101123

REACTIONS (6)
  - Alopecia [Unknown]
  - Off label use [Not Recovered/Not Resolved]
  - Pain in extremity [Recovering/Resolving]
  - Hot flush [Not Recovered/Not Resolved]
  - Muscle spasms [Unknown]
  - Insomnia [Unknown]
